FAERS Safety Report 9516406 (Version 2)
Quarter: 2013Q3

REPORT INFORMATION
  Report Type: Spontaneous
  Country: US (occurrence: US)
  Receive Date: 20130911
  Receipt Date: 20130930
  Transmission Date: 20140515
  Serious: Yes (Hospitalization, Other)
  Sender: FDA-Public Use
  Company Number: US-PFIZER INC-2013259925

PATIENT
  Sex: Male

DRUGS (1)
  1. TIKOSYN [Suspect]
     Indication: ATRIAL FIBRILLATION
     Dosage: UNK

REACTIONS (4)
  - Pulmonary mycosis [Unknown]
  - Respiratory tract infection viral [Unknown]
  - Respiratory tract infection bacterial [Unknown]
  - Respiratory arrest [Unknown]
